FAERS Safety Report 24088687 (Version 1)
Quarter: 2024Q3

REPORT INFORMATION
  Report Type: Spontaneous
  Country: US (occurrence: US)
  Receive Date: 20240715
  Receipt Date: 20240715
  Transmission Date: 20241016
  Serious: Yes (Hospitalization, Other)
  Sender: STEMLINE THERAPEUTICS
  Company Number: US-Stemline Therapeutics, Inc.-2024ST003309

PATIENT
  Age: 49 Year
  Sex: Female

DRUGS (3)
  1. ORSERDU [Suspect]
     Active Substance: ELACESTRANT
     Indication: Product used for unknown indication
     Route: 048
     Dates: start: 20240513
  2. TRUQAP [Concomitant]
     Active Substance: CAPIVASERTIB
     Indication: Breast cancer female
     Dosage: TWICE A DAY, 4 DAYS ON, 3 DAYS OFF
     Dates: start: 20240513
  3. ONDANSETRON [Concomitant]
     Active Substance: ONDANSETRON
     Indication: Product used for unknown indication

REACTIONS (13)
  - Pain [Unknown]
  - Confusional state [Unknown]
  - Dementia Alzheimer^s type [Unknown]
  - Illness [Unknown]
  - Skin texture abnormal [Unknown]
  - Dry skin [Unknown]
  - Product dose omission issue [Unknown]
  - Abdominal discomfort [Unknown]
  - Vomiting [Unknown]
  - Pruritus [Unknown]
  - Diarrhoea [Recovering/Resolving]
  - Oedema peripheral [Unknown]
  - Bone pain [Unknown]

NARRATIVE: CASE EVENT DATE: 20240501
